FAERS Safety Report 18428684 (Version 5)
Quarter: 2021Q4

REPORT INFORMATION
  Report Type: Spontaneous
  Country: US (occurrence: US)
  Receive Date: 20201026
  Receipt Date: 20211122
  Transmission Date: 20220303
  Serious: No
  Sender: FDA-Public Use
  Company Number: US-SA-2020SA298302

PATIENT
  Sex: Female

DRUGS (19)
  1. DUPIXENT [Suspect]
     Active Substance: DUPILUMAB
     Dosage: 300 MG, QOW
     Route: 058
  2. DUPIXENT [Suspect]
     Active Substance: DUPILUMAB
     Dosage: 300 MG, QOW
     Route: 058
     Dates: start: 20200928
  3. ALBUTEROL [Concomitant]
     Active Substance: ALBUTEROL
  4. LORATADINE [Concomitant]
     Active Substance: LORATADINE
  5. COZAAR [Concomitant]
     Active Substance: LOSARTAN POTASSIUM
  6. COZAAR [Concomitant]
     Active Substance: LOSARTAN POTASSIUM
  7. FENOFIBRATE [Concomitant]
     Active Substance: FENOFIBRATE
  8. VITAMIN D NOS [Concomitant]
     Active Substance: VITAMIN D NOS
  9. LEXAPRO [Concomitant]
     Active Substance: ESCITALOPRAM OXALATE
  10. LIPITOR [Concomitant]
     Active Substance: ATORVASTATIN CALCIUM
  11. METFORMIN [Concomitant]
     Active Substance: METFORMIN HYDROCHLORIDE
  12. REMERON [Concomitant]
     Active Substance: MIRTAZAPINE
  13. SINGULAIR [Concomitant]
     Active Substance: MONTELUKAST SODIUM
     Dosage: 4MGS
  14. SYMBICORT [Concomitant]
     Active Substance: BUDESONIDE\FORMOTEROL FUMARATE DIHYDRATE
  15. ALPRAZOLAM [Concomitant]
     Active Substance: ALPRAZOLAM
  16. ZETIA [Concomitant]
     Active Substance: EZETIMIBE
  17. IRON [Concomitant]
     Active Substance: IRON
  18. ALBUTEROL SULFATE [Concomitant]
     Active Substance: ALBUTEROL SULFATE
  19. METFORMIN HYDROCHLORIDE [Concomitant]
     Active Substance: METFORMIN HYDROCHLORIDE

REACTIONS (3)
  - Injection site swelling [Recovered/Resolved]
  - Hiatus hernia [Unknown]
  - Anaemia [Unknown]
